FAERS Safety Report 4765989-X (Version None)
Quarter: 2005Q3

REPORT INFORMATION
  Report Type: 
  Country: None (occurrence: None)
  Receive Date: 20050908
  Receipt Date: 20050831
  Transmission Date: 20060218
  Serious: Yes (Hospitalization, Other)
  Sender: FDA-Public Use
  Company Number: 2005-08-2226

PATIENT

DRUGS (2)
  1. TEMODAR [Suspect]
     Indication: ANAPLASTIC ASTROCYTOMA
     Dosage: ORAL
     Route: 048
  2. RADIATION THERAPY [Concomitant]

REACTIONS (2)
  - MENINGITIS ASEPTIC [None]
  - PAIN [None]
